FAERS Safety Report 13931328 (Version 1)
Quarter: 2017Q3

REPORT INFORMATION
  Report Type: Spontaneous
  Country: KR (occurrence: KR)
  Receive Date: 20170903
  Receipt Date: 20170903
  Transmission Date: 20171127
  Serious: Yes (Other)
  Sender: FDA-Public Use
  Company Number: KR-MYLANLABS-2017M1054344

PATIENT
  Age: 35 Year
  Sex: Male

DRUGS (2)
  1. PHENYTOIN. [Suspect]
     Active Substance: PHENYTOIN
     Indication: FOCAL DYSCOGNITIVE SEIZURES
     Dosage: SINCE 23 YEARS
     Route: 065
  2. VALPROIC ACID. [Concomitant]
     Active Substance: VALPROIC ACID
     Indication: FOCAL DYSCOGNITIVE SEIZURES
     Dosage: SINCE 23 YEARS
     Route: 065

REACTIONS (8)
  - Cerebellar atrophy [Unknown]
  - Tonsillar hypertrophy [Recovered/Resolved]
  - Polyneuropathy [Unknown]
  - Nasopharyngeal reflux [Recovered/Resolved]
  - Velopharyngeal incompetence [Recovered/Resolved]
  - Gingival hypertrophy [Unknown]
  - Toxicity to various agents [Recovered/Resolved]
  - Dysphagia [Recovered/Resolved]
